FAERS Safety Report 7887653-0 (Version None)
Quarter: 2011Q4

REPORT INFORMATION
  Report Type: 
  Country: None (occurrence: None)
  Receive Date: 20111103
  Receipt Date: 20111026
  Transmission Date: 20120403
  Serious: No
  Sender: FDA-Public Use
  Company Number: US-BIOGENIDEC-2011BI041181

PATIENT
  Sex: Female

DRUGS (3)
  1. TYSABRI [Suspect]
     Indication: MULTIPLE SCLEROSIS
     Route: 042
     Dates: start: 20110510
  2. TYSABRI [Suspect]
     Route: 042
     Dates: start: 20080324, end: 20091009
  3. TYSABRI [Suspect]
     Route: 042
     Dates: start: 20100608, end: 20110111

REACTIONS (1)
  - MALAISE [None]
